FAERS Safety Report 20408432 (Version 2)
Quarter: 2022Q1

REPORT INFORMATION
  Report Type: Spontaneous
  Country: JP (occurrence: JP)
  Receive Date: 20220201
  Receipt Date: 20220308
  Transmission Date: 20220423
  Serious: Yes (Other)
  Sender: FDA-Public Use
  Company Number: JP-ASTRAZENECA-220003737_010240_P_1

PATIENT

DRUGS (5)
  1. ZOLADEX [Suspect]
     Active Substance: GOSERELIN ACETATE
     Indication: Prostate cancer
     Dosage: 10.8 MILLIGRAM, EVERY THREE MONTHS
     Route: 058
     Dates: start: 20200129, end: 20220120
  2. ZOLADEX [Suspect]
     Active Substance: GOSERELIN ACETATE
     Indication: Prostate cancer
     Dosage: UNK
     Route: 065
  3. CASODEX [Suspect]
     Active Substance: BICALUTAMIDE
     Indication: Prostate cancer
     Dosage: 80 MILLIGRAM, QD
     Route: 048
     Dates: start: 20170201, end: 20220120
  4. SILODOSIN [Suspect]
     Active Substance: SILODOSIN
     Indication: Prostate cancer
     Dosage: 4 MILLIGRAM, QOD-ALTERNATE D
     Route: 048
     Dates: start: 20120813
  5. FEBUXOSTAT [Suspect]
     Active Substance: FEBUXOSTAT
     Indication: Hyperuricaemia
     Dosage: 10 MILLIGRAM, QD
     Route: 048
     Dates: start: 20161109

REACTIONS (1)
  - Interstitial lung disease [Not Recovered/Not Resolved]

NARRATIVE: CASE EVENT DATE: 20211201
